FAERS Safety Report 7807019-9 (Version None)
Quarter: 2011Q4

REPORT INFORMATION
  Report Type: 
  Country: None (occurrence: None)
  Receive Date: 20111011
  Receipt Date: 20110926
  Transmission Date: 20120403
  Serious: Yes (Other)
  Sender: FDA-Public Use
  Company Number: GB-ROCHE-798968

PATIENT
  Age: 22 Year
  Sex: Female
  Weight: 40 kg

DRUGS (5)
  1. MYCOPHENOLATE MOFETIL [Concomitant]
     Indication: PSORIATIC ARTHROPATHY
     Route: 048
     Dates: start: 20110804
  2. FENTANYL-100 [Concomitant]
     Indication: PAIN
     Route: 061
     Dates: start: 20090101
  3. GABAPENTIN [Concomitant]
     Indication: PAIN
     Dosage: 600 MG IN MORNING AND AFTERNOON, 900MG AT NIGHT
     Route: 048
  4. ACTEMRA [Suspect]
     Indication: PSORIATIC ARTHROPATHY
     Route: 042
     Dates: start: 20110622, end: 20110818
  5. OXYCODONE HCL [Concomitant]
     Indication: PAIN
     Route: 048
     Dates: start: 20090101

REACTIONS (4)
  - PRURITUS [None]
  - EFFUSION [None]
  - HYPERTENSION [None]
  - SKIN DISORDER [None]
